FAERS Safety Report 9056530 (Version 2)
Quarter: 2013Q3

REPORT INFORMATION
  Report Type: Spontaneous
  Country: US (occurrence: US)
  Receive Date: 20130204
  Receipt Date: 20130812
  Transmission Date: 20140515
  Serious: Yes (Hospitalization)
  Sender: FDA-Public Use
  Company Number: US-GLAXOSMITHKLINE-A1010641A

PATIENT
  Age: 65 Year
  Sex: Male

DRUGS (1)
  1. COREG CR [Suspect]
     Indication: PRODUCT USED FOR UNKNOWN INDICATION
     Dosage: 10MG UNKNOWN
     Route: 065
     Dates: start: 20110409

REACTIONS (6)
  - Cardiac pacemaker insertion [Unknown]
  - Pulmonary embolism [Unknown]
  - Cerebral thrombosis [Unknown]
  - Cardiac disorder [Unknown]
  - Thrombosis [Unknown]
  - Aortic aneurysm [Unknown]
